FAERS Safety Report 10141683 (Version 1)
Quarter: 2014Q2

REPORT INFORMATION
  Report Type: Report from Study
  Country: US (occurrence: US)
  Receive Date: 20140429
  Receipt Date: 20140429
  Transmission Date: 20141212
  Serious: Yes (Other)
  Sender: FDA-Public Use
  Company Number: US-ABBVIE-14P-163-1229429-00

PATIENT
  Sex: Female
  Weight: 91.25 kg

DRUGS (4)
  1. LUPRON DEPOT [Suspect]
     Indication: ENDOMETRIOSIS
     Dates: start: 1994
  2. ANTIHISTAMINES [Concomitant]
     Indication: HYPERSENSITIVITY
  3. MIGRAINE MEDICATION [Concomitant]
     Indication: MIGRAINE
  4. LIBRAX [Concomitant]
     Indication: GASTROINTESTINAL PAIN

REACTIONS (15)
  - Appendix cancer [Recovered/Resolved]
  - Diarrhoea [Recovered/Resolved]
  - Abdominal pain [Recovered/Resolved]
  - Weight decreased [Recovered/Resolved]
  - Appendicitis [Recovered/Resolved]
  - Hot flush [Recovered/Resolved]
  - Nail growth abnormal [Recovered/Resolved]
  - Hair growth abnormal [Recovered/Resolved]
  - Hair texture abnormal [Recovered/Resolved]
  - Incisional hernia [Recovered/Resolved]
  - Cholelithiasis [Recovered/Resolved]
  - Abdominal pain [Recovered/Resolved]
  - Therapeutic response changed [Unknown]
  - Weight increased [Recovered/Resolved]
  - Migraine [Unknown]
